FAERS Safety Report 10267417 (Version 1)
Quarter: 2014Q2

REPORT INFORMATION
  Report Type: Spontaneous
  Country: IT (occurrence: IT)
  Receive Date: 20140630
  Receipt Date: 20140630
  Transmission Date: 20141212
  Serious: Yes (Hospitalization)
  Sender: FDA-Public Use
  Company Number: IT-TEVA-490078ISR

PATIENT
  Age: 79 Year
  Sex: Female

DRUGS (2)
  1. LORAZEPAM [Suspect]
     Indication: ANXIETY
     Route: 048
     Dates: start: 20140120, end: 20140126
  2. TALOFEN - 4 G/100 ML GOCCE ORALI, SOLUZIONE - ABBOTT S.R.L. [Suspect]
     Indication: PSYCHOTIC DISORDER
     Dosage: 10 GTT DAILY;
     Route: 048
     Dates: start: 20140120, end: 20140126

REACTIONS (1)
  - Confusional state [Unknown]
